FAERS Safety Report 6614491-9 (Version None)
Quarter: 2010Q1

REPORT INFORMATION
  Report Type: 
  Country: None (occurrence: None)
  Receive Date: 20100304
  Receipt Date: 20100304
  Transmission Date: 20100710
  Serious: No
  Sender: FDA-Public Use
  Company Number: None

PATIENT
  Age: 53 Year
  Sex: Male
  Weight: 89.8122 kg

DRUGS (1)
  1. ENTOCORT EC [Suspect]
     Indication: CROHN'S DISEASE
     Dosage: 3 AT ONCE PER DAY PO
     Route: 048
     Dates: start: 20100212, end: 20100303

REACTIONS (3)
  - HYPERSENSITIVITY [None]
  - PRURITUS [None]
  - RASH [None]
